FAERS Safety Report 6790296-3 (Version None)
Quarter: 2010Q2

REPORT INFORMATION
  Report Type: 
  Country: None (occurrence: None)
  Receive Date: 20100624
  Receipt Date: 20100615
  Transmission Date: 20101027
  Serious: Yes (Other)
  Sender: FDA-Public Use
  Company Number: FR-PFIZER INC-2010074751

PATIENT
  Age: 34 Year
  Sex: Female

DRUGS (3)
  1. CLINDAMYCIN HCL [Suspect]
     Indication: STAPHYLOCOCCAL INFECTION
     Dosage: 2 DF, SINGLE
     Route: 048
     Dates: start: 20100607, end: 20100607
  2. RIFADIN [Suspect]
     Indication: STAPHYLOCOCCAL INFECTION
     Dosage: 600 MG, SINGLE
     Route: 048
     Dates: start: 20100607, end: 20100607
  3. ORBENIN CAP [Concomitant]
     Indication: STAPHYLOCOCCAL INFECTION
     Route: 042

REACTIONS (3)
  - FACE OEDEMA [None]
  - LIP OEDEMA [None]
  - RASH [None]
